FAERS Safety Report 14744441 (Version 1)
Quarter: 2018Q2

REPORT INFORMATION
  Report Type: Report from Study
  Country: BR (occurrence: BR)
  Receive Date: 20180411
  Receipt Date: 20180411
  Transmission Date: 20180711
  Serious: Yes (Hospitalization)
  Sender: FDA-Public Use
  Company Number: BR-BIOGEN-2018BI00551542

PATIENT
  Sex: Female

DRUGS (1)
  1. AVONEX [Suspect]
     Active Substance: INTERFERON BETA-1A
     Indication: MULTIPLE SCLEROSIS
     Route: 030
     Dates: start: 200512, end: 2017

REACTIONS (7)
  - Drug ineffective [Recovered/Resolved]
  - Headache [Unknown]
  - Drug intolerance [Unknown]
  - Multiple sclerosis relapse [Not Recovered/Not Resolved]
  - Influenza like illness [Unknown]
  - Multiple sclerosis [Unknown]
  - Pain [Unknown]

NARRATIVE: CASE EVENT DATE: 2007
